FAERS Safety Report 11016238 (Version 2)
Quarter: 2015Q2

REPORT INFORMATION
  Report Type: Spontaneous
  Country: US (occurrence: US)
  Receive Date: 20150412
  Receipt Date: 20150525
  Transmission Date: 20150821
  Serious: No
  Sender: FDA-Public Use
  Company Number: US-JNJFOC-20131019052

PATIENT
  Age: 57 Year
  Sex: Female
  Weight: 113.4 kg

DRUGS (8)
  1. HYDROCHLORTHIAZID [Concomitant]
     Active Substance: HYDROCHLOROTHIAZIDE
     Indication: BLOOD PRESSURE
     Route: 048
     Dates: start: 2006
  2. PRILOSEC [Concomitant]
     Active Substance: OMEPRAZOLE MAGNESIUM
     Indication: GASTROOESOPHAGEAL REFLUX DISEASE
     Route: 048
     Dates: start: 2009
  3. TRICOR [Concomitant]
     Active Substance: FENOFIBRATE
     Indication: BLOOD PRESSURE
     Route: 048
     Dates: start: 2011
  4. SIMPONI [Suspect]
     Active Substance: GOLIMUMAB
     Indication: PSORIATIC ARTHROPATHY
     Route: 058
     Dates: start: 2011
  5. PREMARIN [Concomitant]
     Active Substance: ESTROGENS, CONJUGATED
     Indication: OESTROGEN REPLACEMENT THERAPY
     Route: 048
     Dates: start: 1983
  6. CALCIUM WITH VITAMIN D [Concomitant]
     Active Substance: CALCIUM\VITAMIN D
     Indication: NUTRITIONAL SUPPLEMENTATION
     Route: 048
     Dates: start: 1983
  7. FLUOXETINE [Concomitant]
     Active Substance: FLUOXETINE\FLUOXETINE HYDROCHLORIDE
     Indication: MIGRAINE
     Route: 048
     Dates: start: 2010
  8. FLUOXETINE [Concomitant]
     Active Substance: FLUOXETINE\FLUOXETINE HYDROCHLORIDE
     Indication: ANXIETY
     Route: 048
     Dates: start: 2010

REACTIONS (1)
  - Drug dose omission [Not Recovered/Not Resolved]

NARRATIVE: CASE EVENT DATE: 20131027
